FAERS Safety Report 8591905-9 (Version None)
Quarter: 2012Q3

REPORT INFORMATION
  Report Type: 
  Country: None (occurrence: None)
  Receive Date: 20120814
  Receipt Date: 20120807
  Transmission Date: 20120928
  Serious: Yes (Hospitalization, Other)
  Sender: FDA-Public Use
  Company Number: JP-VERTEX PHARMACEUTICALS INC.-AE-2012-005685

PATIENT
  Age: 57 Year
  Sex: Male

DRUGS (14)
  1. PEGINTERFERON ALFA-2B [Concomitant]
     Indication: HEPATITIS C
     Route: 051
     Dates: start: 20120301, end: 20120425
  2. ACETAMINOPHEN [Concomitant]
     Route: 048
     Dates: start: 20120419, end: 20120502
  3. ETODOLAC [Concomitant]
     Route: 048
     Dates: start: 20120419, end: 20120425
  4. NABOAL [Concomitant]
     Route: 051
     Dates: start: 20120515
  5. RIBAVIRIN [Concomitant]
     Route: 048
     Dates: start: 20120312
  6. TELAVIC [Suspect]
     Indication: HEPATITIS C
     Route: 048
     Dates: start: 20120301, end: 20120404
  7. TELAVIC [Suspect]
     Route: 048
     Dates: start: 20120405, end: 20120510
  8. TELAVIC [Suspect]
     Route: 048
     Dates: start: 20120511, end: 20120517
  9. TELAVIC [Suspect]
     Route: 048
     Dates: start: 20120518
  10. METFORMIN HCL [Concomitant]
     Route: 048
     Dates: start: 20120419
  11. RIBAVIRIN [Concomitant]
     Indication: HEPATITIS C
     Route: 048
     Dates: start: 20120301, end: 20120311
  12. MOHRUS TAPE L [Concomitant]
     Route: 061
     Dates: start: 20120419, end: 20120509
  13. PEGINTERFERON ALFA-2B [Concomitant]
     Route: 051
     Dates: start: 20120426
  14. MAGMITT [Concomitant]
     Route: 048
     Dates: start: 20120311

REACTIONS (4)
  - LOSS OF CONSCIOUSNESS [None]
  - HAEMOGLOBIN DECREASED [None]
  - ERYTHEMA MULTIFORME [None]
  - GASTRIC ULCER [None]
